FAERS Safety Report 9894172 (Version 6)
Quarter: 2020Q4

REPORT INFORMATION
  Report Type: Spontaneous
  Country: US (occurrence: US)
  Receive Date: 20140213
  Receipt Date: 20201117
  Transmission Date: 20210114
  Serious: Yes (Other)
  Sender: FDA-Public Use
  Company Number: US-PFIZER INC-2014041244

PATIENT
  Age: 70 Year
  Sex: Female
  Weight: 83.9 kg

DRUGS (4)
  1. ALPRAZOLAM. [Suspect]
     Active Substance: ALPRAZOLAM
     Indication: ANXIETY
     Dosage: 0.5 MG, AS NEEDED (UP TO 4 TABLETS)
     Route: 048
     Dates: start: 2003
  2. ALPRAZOLAM. [Suspect]
     Active Substance: ALPRAZOLAM
     Indication: SLEEP DISORDER
     Dosage: 2 MG, DAILY (0.5MG 2 BEDTIME AND 2 AT NIGHT SINCE 2001)
     Dates: start: 2001
  3. ALPRAZOLAM. [Suspect]
     Active Substance: ALPRAZOLAM
     Indication: ABDOMINAL DISCOMFORT
  4. ATENOLOL. [Concomitant]
     Active Substance: ATENOLOL
     Indication: HYPERTENSION
     Dosage: 25 MG IN THE DAY AND 50 MG AT NIGHT 2X/DAY

REACTIONS (7)
  - Drug ineffective [Unknown]
  - Product physical issue [Unknown]
  - Visual impairment [Unknown]
  - Vision blurred [Unknown]
  - Abnormal dreams [Recovered/Resolved]
  - Diarrhoea [Unknown]
  - Breast disorder [Unknown]

NARRATIVE: CASE EVENT DATE: 20140124
